FAERS Safety Report 14558125 (Version 1)
Quarter: 2018Q1

REPORT INFORMATION
  Report Type: Spontaneous
  Country: US (occurrence: US)
  Receive Date: 20180221
  Receipt Date: 20180221
  Transmission Date: 20180509
  Serious: No
  Sender: FDA-Public Use
  Company Number: US-ASTRAZENECA-2018SE20171

PATIENT
  Age: 22324 Day
  Sex: Male
  Weight: 92.5 kg

DRUGS (1)
  1. BYDUREON [Suspect]
     Active Substance: EXENATIDE
     Indication: TYPE 1 DIABETES MELLITUS
     Route: 058

REACTIONS (7)
  - Haemorrhage [Recovered/Resolved]
  - Device difficult to use [Recovered/Resolved]
  - Limb injury [Recovered/Resolved]
  - Pain in extremity [Unknown]
  - Off label use [Unknown]
  - Wrong technique in device usage process [Unknown]
  - Product use in unapproved indication [Unknown]

NARRATIVE: CASE EVENT DATE: 20180212
